FAERS Safety Report 6314903-4 (Version None)
Quarter: 2009Q3

REPORT INFORMATION
  Report Type: 
  Country: None (occurrence: None)
  Receive Date: 20090819
  Receipt Date: 20090810
  Transmission Date: 20100115
  Serious: Yes (Congenital Anomaly)
  Sender: FDA-Public Use
  Company Number: A0679417A

PATIENT
  Sex: Female

DRUGS (4)
  1. PAXIL [Suspect]
     Indication: DEPRESSION
     Dosage: 20MG PER DAY
     Dates: start: 20000101, end: 20030401
  2. PAROXETINE HCL [Suspect]
     Indication: DEPRESSION
     Dosage: 20MG PER DAY
     Dates: start: 20000101, end: 20030401
  3. VITAMIN TAB [Concomitant]
  4. TUMS [Concomitant]

REACTIONS (3)
  - DRUG EXPOSURE DURING PREGNANCY [None]
  - PERSISTENT FOETAL CIRCULATION [None]
  - VENTRICULAR SEPTAL DEFECT [None]
